FAERS Safety Report 7246836-3 (Version None)
Quarter: 2011Q1

REPORT INFORMATION
  Report Type: 
  Country: None (occurrence: None)
  Receive Date: 20110127
  Receipt Date: 20110117
  Transmission Date: 20110831
  Serious: Yes (Other)
  Sender: FDA-Public Use
  Company Number: US-SANOFI-AVENTIS-2011SA003735

PATIENT
  Age: 76 Year
  Sex: Female

DRUGS (5)
  1. PLAVIX [Suspect]
     Route: 048
     Dates: start: 20090101, end: 20100101
  2. ALBUTEROL [Concomitant]
  3. ADVAIR [Concomitant]
  4. SPIRIVA [Concomitant]
  5. PLAVIX [Suspect]
     Route: 048
     Dates: start: 20101201

REACTIONS (3)
  - FATIGUE [None]
  - CHOLELITHIASIS [None]
  - EPISTAXIS [None]
